FAERS Safety Report 9206775 (Version 1)
Quarter: 2013Q2

REPORT INFORMATION
  Report Type: Report from Study
  Country: US (occurrence: US)
  Receive Date: 20130403
  Receipt Date: 20130403
  Transmission Date: 20140414
  Serious: Yes (Hospitalization)
  Sender: FDA-Public Use
  Company Number: US-ABBOTT-13P-163-1068977-00

PATIENT
  Age: 62 Year
  Sex: Male
  Weight: 68.1 kg

DRUGS (3)
  1. CREON [Suspect]
     Indication: PANCREATIC INSUFFICIENCY
     Dosage: 2 WITH EACH MEAL AND 1 WITH EACH SNACK
     Dates: start: 201212
  2. SODIUM BICARBONATE [Concomitant]
     Indication: RENAL DISORDER
  3. UNKNOWN BLOOD PRESSURE [Concomitant]
     Indication: HYPERTENSION

REACTIONS (2)
  - Dyspnoea [Recovering/Resolving]
  - Cardiac failure congestive [Unknown]
